FAERS Safety Report 18020540 (Version 1)
Quarter: 2020Q3

REPORT INFORMATION
  Report Type: Spontaneous
  Country: US (occurrence: US)
  Receive Date: 20200714
  Receipt Date: 20200714
  Transmission Date: 20201103
  Serious: No
  Sender: FDA-Public Use
  Company Number: US-SA-2020SA175346

PATIENT

DRUGS (1)
  1. DUPIXENT [Suspect]
     Active Substance: DUPILUMAB
     Indication: ASTHMA

REACTIONS (4)
  - Drug hypersensitivity [Unknown]
  - Rash erythematous [Unknown]
  - Lacrimation increased [Unknown]
  - Pruritus [Unknown]

NARRATIVE: CASE EVENT DATE: 20200702
